FAERS Safety Report 4437923-3 (Version None)
Quarter: 2004Q3

REPORT INFORMATION
  Report Type: 
  Country: None (occurrence: None)
  Receive Date: 20040728
  Receipt Date: 20040319
  Transmission Date: 20050211
  Serious: No
  Sender: FDA-Public Use
  Company Number: USA040362593

PATIENT
  Age: 44 Year
  Sex: Female
  Weight: 103 kg

DRUGS (5)
  1. STRATTERA [Suspect]
     Dosage: 40 MG DAY
     Dates: start: 20040315
  2. MAVIK [Concomitant]
  3. HYDROCHLOROTHIAZIDE [Concomitant]
  4. INDERAL (PROPANAOLOL HYDROCHLORIDE) [Concomitant]
  5. PREVACID [Concomitant]

REACTIONS (2)
  - DYSGEUSIA [None]
  - NAUSEA [None]
